FAERS Safety Report 12071087 (Version 3)
Quarter: 2016Q1

REPORT INFORMATION
  Report Type: Spontaneous
  Country: US (occurrence: US)
  Receive Date: 20160211
  Receipt Date: 20160323
  Transmission Date: 20160526
  Serious: Yes (Hospitalization)
  Sender: FDA-Public Use
  Company Number: US-AUROBINDO-AUR-APL-2016-01551

PATIENT
  Sex: Female
  Weight: 65.8 kg

DRUGS (7)
  1. METOPROLOL. [Suspect]
     Active Substance: METOPROLOL
     Indication: PRODUCT USED FOR UNKNOWN INDICATION
     Route: 065
  2. PRILOSEC [Suspect]
     Active Substance: OMEPRAZOLE MAGNESIUM
     Indication: DYSPEPSIA
     Route: 048
  3. OMEPRAZOLE DELAYED RELEASE [Suspect]
     Active Substance: OMEPRAZOLE
     Indication: DYSPEPSIA
     Dosage: 1 DF, DAILY
     Route: 048
  4. NEXIUM [Suspect]
     Active Substance: ESOMEPRAZOLE MAGNESIUM
     Indication: BOWEL MOVEMENT IRREGULARITY
     Dosage: 22.3 MG, DAILY
     Route: 048
     Dates: start: 201601
  5. NEXIUM [Suspect]
     Active Substance: ESOMEPRAZOLE MAGNESIUM
     Indication: DYSPEPSIA
     Dosage: 40 MG, ONCE A DAY
     Route: 048
     Dates: start: 2008, end: 201601
  6. PRILOSEC [Suspect]
     Active Substance: OMEPRAZOLE MAGNESIUM
     Indication: BOWEL MOVEMENT IRREGULARITY
  7. OMEPRAZOLE DELAYED RELEASE [Suspect]
     Active Substance: OMEPRAZOLE
     Indication: BOWEL MOVEMENT IRREGULARITY

REACTIONS (7)
  - Off label use [Unknown]
  - Drug ineffective [Unknown]
  - Drug hypersensitivity [Unknown]
  - Blood cholesterol abnormal [Unknown]
  - Product use issue [Unknown]
  - Open fracture [Unknown]
  - Hypertension [Unknown]

NARRATIVE: CASE EVENT DATE: 2008
